FAERS Safety Report 15549371 (Version 1)
Quarter: 2018Q4

REPORT INFORMATION
  Report Type: Spontaneous
  Country: US (occurrence: US)
  Receive Date: 20181025
  Receipt Date: 20181025
  Transmission Date: 20190205
  Serious: No
  Sender: FDA-Public Use
  Company Number: US-PFIZER INC-2018428385

PATIENT
  Age: 57 Year
  Sex: Female
  Weight: 73.48 kg

DRUGS (2)
  1. DETROL LA [Suspect]
     Active Substance: TOLTERODINE TARTRATE
     Indication: INCONTINENCE
  2. DETROL LA [Suspect]
     Active Substance: TOLTERODINE TARTRATE
     Indication: BLADDER DISORDER
     Dosage: 4 MG CAPSULE, TAKE 1 PER DAY
     Route: 048

REACTIONS (3)
  - Product use complaint [Unknown]
  - Weight decreased [Unknown]
  - Intervertebral disc degeneration [Unknown]
